FAERS Safety Report 15355395 (Version 1)
Quarter: 2018Q3

REPORT INFORMATION
  Report Type: Spontaneous
  Country: HU (occurrence: HU)
  Receive Date: 20180906
  Receipt Date: 20180906
  Transmission Date: 20181010
  Serious: Yes (Disabling)
  Sender: FDA-Public Use
  Company Number: HU-ROCHE-2181348

PATIENT
  Age: 71 Year
  Sex: Female

DRUGS (2)
  1. CAPECITABINE. [Suspect]
     Active Substance: CAPECITABINE
     Indication: ADENOCARCINOMA
     Dosage: TWICE DAILY FOR TWO WEEKS IN EACH 3?WEEK CYCLE?FILM?COATED TABLET
     Route: 048
     Dates: start: 20180327
  2. OXALIPLATIN. [Suspect]
     Active Substance: OXALIPLATIN
     Indication: ADENOCARCINOMA
     Route: 042
     Dates: start: 20180327

REACTIONS (1)
  - Deafness unilateral [Not Recovered/Not Resolved]
